FAERS Safety Report 20933544 (Version 1)
Quarter: 2022Q2

REPORT INFORMATION
  Report Type: Spontaneous
  Country: AU (occurrence: AU)
  Receive Date: 20220608
  Receipt Date: 20220608
  Transmission Date: 20220721
  Serious: Yes (Death)
  Sender: FDA-Public Use
  Company Number: AU-NOVARTISPH-NVSC2022AU131720

PATIENT
  Age: 23 Year
  Sex: Male

DRUGS (8)
  1. CLOZAPINE [Suspect]
     Active Substance: CLOZAPINE
     Indication: Schizophrenia
     Dosage: UNK
     Route: 065
  2. QUETIAPINE [Suspect]
     Active Substance: QUETIAPINE
     Indication: Schizophrenia
     Dosage: UNK
     Route: 065
  3. DIAZEPAM [Suspect]
     Active Substance: DIAZEPAM
     Indication: Schizophrenia
     Dosage: UNK
     Route: 065
  4. DIAZEPAM [Suspect]
     Active Substance: DIAZEPAM
     Indication: Sedative therapy
  5. TEMAZEPAM [Suspect]
     Active Substance: TEMAZEPAM
     Indication: Schizophrenia
     Dosage: UNK
     Route: 065
  6. TEMAZEPAM [Suspect]
     Active Substance: TEMAZEPAM
     Indication: Sedative therapy
  7. CHLORPROMAZINE [Suspect]
     Active Substance: CHLORPROMAZINE
     Indication: Schizophrenia
     Dosage: UNK
     Route: 065
  8. METHADONE [Suspect]
     Active Substance: METHADONE HYDROCHLORIDE
     Indication: Pain management
     Dosage: 50 MG, QD
     Route: 048

REACTIONS (3)
  - Respiratory depression [Fatal]
  - Toxicity to various agents [Fatal]
  - Product communication issue [Fatal]
